FAERS Safety Report 14849899 (Version 3)
Quarter: 2019Q2

REPORT INFORMATION
  Report Type: Spontaneous
  Country: US (occurrence: US)
  Receive Date: 20180504
  Receipt Date: 20190412
  Transmission Date: 20190711
  Serious: Yes (Other)
  Sender: FDA-Public Use
  Company Number: US-ASTRAZENECA-2018SE52579

PATIENT
  Age: 10827 Day
  Sex: Male
  Weight: 106.6 kg

DRUGS (13)
  1. PREVACID 24 HR [Suspect]
     Active Substance: LANSOPRAZOLE
     Indication: CROHN^S DISEASE
     Route: 065
  2. AZATHIOPRINE. [Concomitant]
     Active Substance: AZATHIOPRINE
     Indication: ARTHRITIS
  3. ATENOLOL. [Concomitant]
     Active Substance: ATENOLOL
     Indication: HYPERTENSION
  4. CIPROFLOXACIN. [Concomitant]
     Active Substance: CIPROFLOXACIN
     Indication: INFECTION
  5. DEXILANT [Suspect]
     Active Substance: DEXLANSOPRAZOLE
     Indication: CROHN^S DISEASE
     Route: 065
  6. PREVACID [Suspect]
     Active Substance: LANSOPRAZOLE
     Indication: CROHN^S DISEASE
     Dosage: LANSOPRAZOLE
     Route: 065
  7. MINOXIDIL. [Concomitant]
     Active Substance: MINOXIDIL
     Indication: HYPERTENSION
  8. PRILOSEC OTC [Suspect]
     Active Substance: OMEPRAZOLE MAGNESIUM
     Indication: CROHN^S DISEASE
     Route: 048
     Dates: start: 1992, end: 2016
  9. PANTOPRAZOLE [Suspect]
     Active Substance: PANTOPRAZOLE
     Indication: CROHN^S DISEASE
     Route: 065
  10. PRILOSEC [Suspect]
     Active Substance: OMEPRAZOLE MAGNESIUM
     Indication: CROHN^S DISEASE
     Route: 048
     Dates: start: 1992, end: 2016
  11. DEXILANT [Suspect]
     Active Substance: DEXLANSOPRAZOLE
     Indication: CROHN^S DISEASE
     Dosage: DEXALANSOPRAZOLE
     Route: 065
  12. PREVACID [Suspect]
     Active Substance: LANSOPRAZOLE
     Indication: CROHN^S DISEASE
     Route: 065
  13. HYDROCODONE/ACETAMINOPHEN [Concomitant]
     Active Substance: ACETAMINOPHEN\HYDROCODONE
     Indication: PAIN

REACTIONS (9)
  - Neuropathy peripheral [Unknown]
  - Chronic kidney disease [Unknown]
  - Pancreatitis [Unknown]
  - Hypertension [Unknown]
  - End stage renal disease [Unknown]
  - Arthritis [Unknown]
  - Nuchal rigidity [Unknown]
  - Renal failure [Unknown]
  - Sciatica [Unknown]

NARRATIVE: CASE EVENT DATE: 20110807
